FAERS Safety Report 25252770 (Version 1)
Quarter: 2025Q2

REPORT INFORMATION
  Report Type: Report from Study
  Country: US (occurrence: US)
  Receive Date: 20250429
  Receipt Date: 20250429
  Transmission Date: 20250717
  Serious: Yes (Hospitalization)
  Sender: ABBVIE
  Company Number: US-ABBVIE-6233902

PATIENT
  Age: 80 Year
  Sex: Female

DRUGS (3)
  1. HUMIRA [Suspect]
     Active Substance: ADALIMUMAB
     Indication: Colitis ulcerative
     Route: 058
     Dates: start: 20250130, end: 20250130
  2. HUMIRA [Suspect]
     Active Substance: ADALIMUMAB
     Route: 058
     Dates: start: 202502, end: 202502
  3. HUMIRA [Suspect]
     Active Substance: ADALIMUMAB
     Dosage: FIRST ADMIN DATE WAS 2025{ LAST ADMIN DATE: 2025, FORM STRENGTH 40 MG
     Route: 058

REACTIONS (6)
  - Respiratory distress [Recovering/Resolving]
  - Oxygen saturation abnormal [Recovering/Resolving]
  - Blood iron decreased [Unknown]
  - Drug ineffective [Not Recovered/Not Resolved]
  - Pneumonia [Recovering/Resolving]
  - Immunodeficiency [Unknown]

NARRATIVE: CASE EVENT DATE: 20250101
